FAERS Safety Report 19884146 (Version 1)
Quarter: 2021Q3

REPORT INFORMATION
  Report Type: Spontaneous
  Country: US (occurrence: US)
  Receive Date: 20210923
  Receipt Date: 20210923
  Transmission Date: 20211014
  Serious: Yes (Hospitalization)
  Sender: FDA-Public Use
  Company Number: None

PATIENT
  Age: 17 Year
  Sex: Female

DRUGS (9)
  1. CALCIUM [Concomitant]
     Active Substance: CALCIUM
  2. MULTIVITAMIN [Concomitant]
     Active Substance: VITAMINS
  3. PREDNISONE. [Concomitant]
     Active Substance: PREDNISONE
  4. LASIX [Concomitant]
     Active Substance: FUROSEMIDE
  5. HYDROXYCHLOR [Concomitant]
     Active Substance: HYDROXYCHLOROQUINE
  6. AMBRISENTAN 10 MG TAB [Suspect]
     Active Substance: AMBRISENTAN
     Indication: PULMONARY ARTERIAL HYPERTENSION
     Route: 048
     Dates: start: 20201027
  7. PEPCID CHW COMPLETE [Concomitant]
  8. TADALAFIL. [Concomitant]
     Active Substance: TADALAFIL
  9. REMODULIN [Concomitant]
     Active Substance: TREPROSTINIL

REACTIONS (5)
  - Nausea [None]
  - Headache [None]
  - Vomiting [None]
  - Adverse drug reaction [None]
  - Diarrhoea [None]

NARRATIVE: CASE EVENT DATE: 20210907
